FAERS Safety Report 17146403 (Version 2)
Quarter: 2019Q4

REPORT INFORMATION
  Report Type: Report from Study
  Country: IT (occurrence: IT)
  Receive Date: 20191212
  Receipt Date: 20191217
  Transmission Date: 20200122
  Serious: Yes (Other)
  Sender: FDA-Public Use
  Company Number: IT-PFIZER INC-2019532694

PATIENT
  Age: 47 Year
  Sex: Female

DRUGS (4)
  1. NON-PEGYLATED LIPOSOMAL DOXORUBICIN HYDROCHL. [Suspect]
     Active Substance: DOXORUBICIN HYDROCHLORIDE
     Dosage: 60 MG/M2, UNK
     Route: 065
     Dates: start: 20120507
  2. ZOLEDRONIC ACID [Suspect]
     Active Substance: ZOLEDRONIC ACID
     Dosage: UNK
     Route: 065
     Dates: start: 20120507
  3. METFORMIN [Suspect]
     Active Substance: METFORMIN HYDROCHLORIDE
     Dosage: 2000 MG, DAILY
     Route: 065
     Dates: start: 20120507
  4. CYCLOPHOSPHAMIDE. [Suspect]
     Active Substance: CYCLOPHOSPHAMIDE
     Dosage: 600 MG/M2, UNK
     Route: 065
     Dates: start: 20120507

REACTIONS (2)
  - Electrocardiogram repolarisation abnormality [Unknown]
  - Bone lesion [Unknown]
